FAERS Safety Report 8474055-1 (Version None)
Quarter: 2012Q2

REPORT INFORMATION
  Report Type: 
  Country: None (occurrence: None)
  Receive Date: 20120628
  Receipt Date: 20120118
  Transmission Date: 20120825
  Serious: Yes (Other)
  Sender: FDA-Public Use
  Company Number: US-MYLANLABS-2011S1000841

PATIENT
  Age: 26 Year
  Sex: Male

DRUGS (8)
  1. CLOZAPINE [Suspect]
     Dates: end: 20110126
  2. BENZTROPINE MESYLATE [Concomitant]
     Route: 048
  3. DEPAKOTE ER [Concomitant]
     Indication: CONVULSION
     Route: 048
  4. KEPPRA [Concomitant]
     Indication: CONVULSION
     Route: 048
  5. PROMETHAZINE [Concomitant]
     Indication: NAUSEA
     Route: 048
  6. NEXIUM [Concomitant]
     Indication: GASTROOESOPHAGEAL REFLUX DISEASE
     Route: 048
  7. TRILIPIX [Concomitant]
     Route: 048
  8. CLOZAPINE [Suspect]
     Dates: end: 20110126

REACTIONS (1)
  - GRANULOCYTOPENIA [None]
